FAERS Safety Report 18860428 (Version 8)
Quarter: 2022Q1

REPORT INFORMATION
  Report Type: Spontaneous
  Country: US (occurrence: US)
  Receive Date: 20210208
  Receipt Date: 20220117
  Transmission Date: 20220424
  Serious: Yes (Hospitalization, Other)
  Sender: FDA-Public Use
  Company Number: US-DECIPHERA PHARMACEUTICALS LLC-2021US000078

PATIENT
  Age: 62 Year
  Sex: Male
  Weight: 83.9 kg

DRUGS (7)
  1. QINLOCK [Suspect]
     Active Substance: RIPRETINIB
     Indication: Gastrointestinal stromal tumour
     Dosage: 150 MILLIGRAM, QD
     Route: 048
     Dates: start: 20201008
  2. QINLOCK [Suspect]
     Active Substance: RIPRETINIB
     Dosage: 150 MILLIGRAM, QD
     Route: 048
     Dates: start: 20210319
  3. QINLOCK [Suspect]
     Active Substance: RIPRETINIB
     Dosage: 150 MILLIGRAM, BID
     Route: 048
     Dates: start: 202103
  4. QINLOCK [Suspect]
     Active Substance: RIPRETINIB
     Dosage: 150 UNK
     Route: 048
     Dates: end: 20210520
  5. QINLOCK [Suspect]
     Active Substance: RIPRETINIB
     Dosage: 150 MILLIGRAM, BID
     Route: 048
  6. PROPRANOLOL [Concomitant]
     Active Substance: PROPRANOLOL HYDROCHLORIDE
     Indication: Product used for unknown indication
     Dosage: UNK
     Route: 065
  7. INSULIN NOS [Concomitant]
     Active Substance: INSULIN NOS
     Indication: Product used for unknown indication
     Dosage: UNK
     Route: 065

REACTIONS (11)
  - Post procedural urine leak [Unknown]
  - Ureteric fistula [Not Recovered/Not Resolved]
  - Ureteric repair [Unknown]
  - Urinary tract stoma complication [Recovered/Resolved]
  - Neoplasm progression [Unknown]
  - Colonic fistula [Not Recovered/Not Resolved]
  - Colostomy [Unknown]
  - Blood magnesium decreased [Unknown]
  - Asthenia [Unknown]
  - Alopecia [Unknown]
  - Extra dose administered [Unknown]

NARRATIVE: CASE EVENT DATE: 20210125
